FAERS Safety Report 5062420-4 (Version None)
Quarter: 2006Q3

REPORT INFORMATION
  Report Type: 
  Country: None (occurrence: None)
  Receive Date: 20060721
  Receipt Date: 20060705
  Transmission Date: 20061208
  Serious: Yes (Hospitalization)
  Sender: FDA-Public Use
  Company Number: 2006US001238

PATIENT
  Age: 54 Year
  Sex: Female

DRUGS (1)
  1. AMEVIVE [Suspect]
     Dates: start: 20040121, end: 20040407

REACTIONS (3)
  - CELLULITIS [None]
  - CONDITION AGGRAVATED [None]
  - PSORIASIS [None]
